FAERS Safety Report 8255568 (Version 2)
Quarter: 2012Q4

REPORT INFORMATION
  Report Type: 
  Country: US (occurrence: US)
  Receive Date: 20111118
  Receipt Date: 20120921
  Transmission Date: 20130627
  Serious: Yes (Hospitalization, Other)
  Sender: FDA-Public Use
  Company Number: US-US-EMD SERONO, INC.-7095142

PATIENT
  Age: 69 Year
  Sex: Female

DRUGS (6)
  1. REBIF [Suspect]
     Indication: MULTIPLE SCLEROSIS
     Route: 058
     Dates: start: 20020529
  2. ENALAPRIL [Concomitant]
     Indication: HYPERTENSION
  3. LOVAZA [Concomitant]
     Indication: HYPERCHOLESTEROLAEMIA
  4. VICODIN [Concomitant]
     Indication: PAIN
  5. HYDROCHLOROTHIAZIDE [Concomitant]
     Indication: HYPERTENSION
  6. TRICOR [Concomitant]
     Indication: HYPERCHOLESTEROLAEMIA

REACTIONS (2)
  - Transient ischaemic attack [Recovering/Resolving]
  - Gastric ulcer haemorrhage [Recovered/Resolved]
